FAERS Safety Report 8054110-0 (Version None)
Quarter: 2012Q1

REPORT INFORMATION
  Report Type: 
  Country: None (occurrence: None)
  Receive Date: 20120118
  Receipt Date: 20120111
  Transmission Date: 20120608
  Serious: Yes (Hospitalization, Other)
  Sender: FDA-Public Use
  Company Number: AU-B.I. PHARMACEUTICALS,INC./RIDGEFIELD-2012-AU-00058AU

PATIENT
  Sex: Male
  Weight: 96 kg

DRUGS (5)
  1. KARVEA [Concomitant]
     Dates: start: 20090122
  2. BICOR [Concomitant]
     Dates: start: 20101124
  3. LASIX [Concomitant]
     Dates: start: 20001113
  4. PRADAXA [Suspect]
     Indication: ATRIAL FIBRILLATION
     Dosage: 300 MG
     Route: 048
     Dates: start: 20110729, end: 20111001
  5. ZYLOPRIM [Concomitant]
     Dates: start: 20060629

REACTIONS (1)
  - CEREBROVASCULAR ACCIDENT [None]
